FAERS Safety Report 19094582 (Version 3)
Quarter: 2022Q3

REPORT INFORMATION
  Report Type: Report from Study
  Country: NL (occurrence: NL)
  Receive Date: 20210406
  Receipt Date: 20220919
  Transmission Date: 20221027
  Serious: Yes (Death, Life-Threatening, Hospitalization, Other)
  Sender: FDA-Public Use
  Company Number: NL-CELLTRION INC.-2021NL004334

PATIENT

DRUGS (9)
  1. RITUXIMAB [Suspect]
     Active Substance: RITUXIMAB
     Indication: Follicular lymphoma
     Dosage: 900 MG/M2, EVERY 8 WEEK
     Route: 042
     Dates: start: 20200706, end: 20201014
  2. IBRUTINIB [Suspect]
     Active Substance: IBRUTINIB
     Indication: Follicular lymphoma
     Dosage: ONCE A DAY (QD)
     Route: 048
     Dates: start: 20200706, end: 20201014
  3. METOPROLOL [Concomitant]
     Active Substance: METOPROLOL
     Indication: Atrial fibrillation
     Dosage: 25 MG, QD
     Dates: start: 20190328
  4. PROPRANOLOL [Concomitant]
     Active Substance: PROPRANOLOL HYDROCHLORIDE
     Indication: Atrial fibrillation
     Dosage: 60 MG, QD
     Dates: start: 20190722
  5. PROPRANOLOL [Concomitant]
     Active Substance: PROPRANOLOL HYDROCHLORIDE
     Dosage: 40 MG, QD
     Dates: start: 20201014
  6. APIXABAN [Concomitant]
     Active Substance: APIXABAN
     Indication: Atrial fibrillation
     Dosage: 5 MG, EVERY 0.5 DAY (DOSAGE TEXT: 10 MG)
     Dates: start: 20190328
  7. SOLIFENACIN [Concomitant]
     Active Substance: SOLIFENACIN
     Indication: Urinary retention
     Dosage: 5 MG, QD
     Dates: start: 20190328
  8. ALLOPURINOL [Concomitant]
     Active Substance: ALLOPURINOL
     Indication: Gout
     Dosage: 200 MG, QD
     Dates: start: 20190411
  9. CEFUROXIME [Concomitant]
     Active Substance: CEFUROXIME
     Indication: Product used for unknown indication
     Dosage: 1500 MG, 0.33 DAY
     Dates: start: 20200411

REACTIONS (6)
  - SARS-CoV-2 test positive [Fatal]
  - COVID-19 pneumonia [Fatal]
  - Pneumatosis intestinalis [Not Recovered/Not Resolved]
  - Diarrhoea [Recovered/Resolved]
  - Pneumatosis [Unknown]
  - Overdose [Unknown]

NARRATIVE: CASE EVENT DATE: 20201014
